FAERS Safety Report 8974201 (Version 1)
Quarter: 2012Q4

REPORT INFORMATION
  Report Type: Spontaneous
  Country: US (occurrence: None)
  Receive Date: 20121214
  Receipt Date: 20121214
  Transmission Date: 20130627
  Serious: Yes (Hospitalization)
  Sender: FDA-Public Use
  Company Number: DKLU1086941

PATIENT
  Age: 14 Year
  Sex: Male
  Weight: 93 kg

DRUGS (6)
  1. ELSPAR [Suspect]
     Dosage: ,  Cyclical
     Dates: start: 20120905, end: 20121012
  2. VELCADE [Suspect]
     Dosage: 1.3 mg/m2 milligram(s)/sq.meter, Cyclical, Intravenous bolus
     Route: 040
     Dates: start: 20120905, end: 20120917
  3. CYTARABINE [Suspect]
     Dosage: ,  Cyclical,  Intrathecal
     Route: 037
     Dates: start: 20120905, end: 20120905
  4. METHOTREXATE [Suspect]
     Dosage: ,  Cyclical,  Intrathecal
     Route: 037
     Dates: start: 20120905, end: 20121005
  5. PREDNISONE [Suspect]
     Dosage: 20 mg/m2 milligram(s)/sq. meter, Cyclical, Oral
     Route: 048
     Dates: start: 20120905
  6. VINCRISTINE [Suspect]
     Dosage: 1.5 mg/m2 milligram(s)/sq.meter, Cyclical, Intravenous bolus
     Route: 040
     Dates: start: 20120905, end: 20120928

REACTIONS (8)
  - Hypotension [None]
  - Sepsis [None]
  - Skin ulcer [None]
  - Anal fistula [None]
  - Escherichia infection [None]
  - Blood culture positive [None]
  - Periorbital cellulitis [None]
  - Anal abscess [None]
